FAERS Safety Report 8840146 (Version 1)
Quarter: 2012Q4

REPORT INFORMATION
  Report Type: 
  Country: US (occurrence: US)
  Receive Date: 20121015
  Receipt Date: 20121015
  Transmission Date: 20130627
  Serious: No
  Sender: FDA-Public Use
  Company Number: US-PFIZER INC-2012252390

PATIENT
  Age: 50 Year

DRUGS (7)
  1. ERYTHROMYCIN [Suspect]
     Dosage: UNK
  2. DOXYCYCLINE [Suspect]
     Dosage: UNK
     Route: 048
  3. AMOXICILLIN [Suspect]
     Dosage: UNK
  4. LISINOPRIL [Suspect]
     Dosage: UNK
  5. HYDROCHLOROTHIAZIDE [Suspect]
     Dosage: UNK
  6. GLYBURIDE [Suspect]
     Dosage: UNK
  7. KEFLEX [Suspect]
     Dosage: UNK

REACTIONS (1)
  - Drug hypersensitivity [Unknown]
